FAERS Safety Report 4673784-5 (Version None)
Quarter: 2005Q2

REPORT INFORMATION
  Report Type: 
  Country: None (occurrence: None)
  Receive Date: 20050524
  Receipt Date: 20050512
  Transmission Date: 20051028
  Serious: Yes (Death)
  Sender: FDA-Public Use
  Company Number: HQWYE584912JAN05

PATIENT
  Age: 75 Year
  Sex: Male

DRUGS (8)
  1. TAZOCIN (PIPERACILLIN/TAZOBACTAM, INJECTION) [Suspect]
     Indication: PYELONEPHRITIS
     Dosage: 2.5 G 2X PER 1 DAY, INTRAVENOUS DRIP
     Route: 041
     Dates: start: 20041012, end: 20041018
  2. BLOPRESS (CANDESARTAN CILEXETIL) [Concomitant]
  3. KREMEZIN (CHARCOAL, ACTIVATED) [Concomitant]
  4. DEPAKENE [Concomitant]
  5. NORVASC [Concomitant]
  6. LASIX [Concomitant]
  7. ALDACTONE [Concomitant]
  8. DOXAZOSIN MESYLATE [Concomitant]

REACTIONS (4)
  - CONDITION AGGRAVATED [None]
  - PNEUMONIA [None]
  - RENAL FAILURE [None]
  - WHITE BLOOD CELL COUNT DECREASED [None]
